FAERS Safety Report 9560319 (Version 2)
Quarter: 2013Q4

REPORT INFORMATION
  Report Type: Spontaneous
  Country: US (occurrence: US)
  Receive Date: 20130927
  Receipt Date: 20131021
  Transmission Date: 20140711
  Serious: Yes (Death, Hospitalization, Other)
  Sender: FDA-Public Use
  Company Number: US-AMGEN-USASP2013066770

PATIENT
  Age: 79 Year
  Sex: Female
  Weight: 99.1 kg

DRUGS (4)
  1. SENSIPAR [Suspect]
     Indication: HYPERPARATHYROIDISM SECONDARY
     Dosage: 30 MG, QD
     Route: 048
  2. PRAVASTATIN [Concomitant]
  3. INSULIN [Concomitant]
  4. CLONIDINE [Concomitant]

REACTIONS (12)
  - Injury [Unknown]
  - Fall [Unknown]
  - Respiratory distress [Unknown]
  - Hepatic failure [Unknown]
  - Fluid overload [Unknown]
  - Haematoma [Unknown]
  - Loss of consciousness [Unknown]
  - Pulmonary congestion [Unknown]
  - Arteriosclerosis [Unknown]
  - Cardiomegaly [Unknown]
  - Septic shock [Fatal]
  - Abdominal pain [Unknown]
